FAERS Safety Report 7432534-X (Version None)
Quarter: 2011Q2

REPORT INFORMATION
  Report Type: 
  Country: None (occurrence: None)
  Receive Date: 20110422
  Receipt Date: 20110421
  Transmission Date: 20111010
  Serious: No
  Sender: FDA-Public Use
  Company Number: AU-PFIZER INC-2011076639

PATIENT
  Age: 76 Year
  Sex: Male

DRUGS (1)
  1. TORISEL [Suspect]
     Indication: METASTATIC RENAL CELL CARCINOMA
     Dosage: 25 MG, WEEKLY
     Route: 042
     Dates: start: 20100101, end: 20101223

REACTIONS (4)
  - NEUROPATHY PERIPHERAL [None]
  - DISEASE PROGRESSION [None]
  - ONYCHOLYSIS [None]
  - METASTATIC RENAL CELL CARCINOMA [None]
